FAERS Safety Report 12498729 (Version 2)
Quarter: 2020Q1

REPORT INFORMATION
  Report Type: Spontaneous
  Country: US (occurrence: US)
  Receive Date: 20160627
  Receipt Date: 20200324
  Transmission Date: 20200409
  Serious: Yes (Other)
  Sender: FDA-Public Use
  Company Number: US-JAZZ-2015-US-021545

PATIENT
  Sex: Male

DRUGS (4)
  1. XYREM [Suspect]
     Active Substance: SODIUM OXYBATE
     Indication: NARCOLEPSY
     Dosage: 4.5 G, BID
     Route: 048
     Dates: start: 200407, end: 200609
  2. XYREM [Suspect]
     Active Substance: SODIUM OXYBATE
     Dosage: 2.25 G, BID
     Route: 048
     Dates: start: 200609, end: 200609
  3. XYREM [Suspect]
     Active Substance: SODIUM OXYBATE
     Dosage: 4.5 G, BID
     Route: 048
     Dates: start: 200609
  4. IPRATROPIUM [Concomitant]
     Active Substance: IPRATROPIUM
     Indication: RHINITIS ALLERGIC

REACTIONS (6)
  - Musculoskeletal pain [Recovered/Resolved]
  - Atrial fibrillation [Unknown]
  - Gastrooesophageal reflux disease [Unknown]
  - Benign prostatic hyperplasia [Unknown]
  - Seasonal allergy [Not Recovered/Not Resolved]
  - Condition aggravated [Not Recovered/Not Resolved]

NARRATIVE: CASE EVENT DATE: 2010
